FAERS Safety Report 12108631 (Version 1)
Quarter: 2016Q1

REPORT INFORMATION
  Report Type: Spontaneous
  Country: US (occurrence: None)
  Receive Date: 20160222
  Receipt Date: 20160222
  Transmission Date: 20160526
  Serious: Yes (Death)
  Sender: FDA-Public Use
  Company Number: None

PATIENT

DRUGS (14)
  1. TORADOL [Concomitant]
     Active Substance: KETOROLAC TROMETHAMINE
  2. CEFTRIAXONE. [Suspect]
     Active Substance: CEFTRIAXONE
     Indication: PYREXIA
     Route: 042
     Dates: start: 20151110, end: 20151110
  3. RANITIDINE [Concomitant]
     Active Substance: RANITIDINE\RANITIDINE HYDROCHLORIDE
  4. AZITHROMYCIN ANHYDROUS. [Concomitant]
     Active Substance: AZITHROMYCIN ANHYDROUS
  5. CEFTRIAXONE. [Concomitant]
     Active Substance: CEFTRIAXONE
  6. LIDOCAINE. [Concomitant]
     Active Substance: LIDOCAINE
  7. CEFTRIAXONE. [Suspect]
     Active Substance: CEFTRIAXONE
     Indication: SICKLE CELL ANAEMIA
     Route: 042
     Dates: start: 20151110, end: 20151110
  8. CEFTRIAXONE. [Suspect]
     Active Substance: CEFTRIAXONE
     Indication: INFECTION
     Route: 042
     Dates: start: 20151110, end: 20151110
  9. MELATONIN [Concomitant]
     Active Substance: MELATONIN
  10. ATIVAN [Concomitant]
     Active Substance: LORAZEPAM
  11. ALBUTEROL. [Concomitant]
     Active Substance: ALBUTEROL
  12. NS FLUID FLUSH [Concomitant]
  13. RITALIN [Concomitant]
     Active Substance: METHYLPHENIDATE HYDROCHLORIDE
  14. SYMBICORT [Concomitant]
     Active Substance: BUDESONIDE\FORMOTEROL FUMARATE DIHYDRATE

REACTIONS (14)
  - Pallor [None]
  - Ventricular fibrillation [None]
  - Hypertension [None]
  - Tachycardia [None]
  - Bradycardia [None]
  - Cardiac arrest [None]
  - Altered state of consciousness [None]
  - Moaning [None]
  - Grunting [None]
  - Haemoglobin decreased [None]
  - Unresponsive to stimuli [None]
  - Nasal flaring [None]
  - Heart rate increased [None]
  - Hypotension [None]

NARRATIVE: CASE EVENT DATE: 20151110
